FAERS Safety Report 8094461-7 (Version None)
Quarter: 2012Q1

REPORT INFORMATION
  Report Type: 
  Country: None (occurrence: None)
  Receive Date: 20120130
  Receipt Date: 20120117
  Transmission Date: 20120608
  Serious: Yes (Other)
  Sender: FDA-Public Use
  Company Number: GB-ELI_LILLY_AND_COMPANY-GB201110000527

PATIENT
  Sex: Female

DRUGS (9)
  1. ACETAMINOPHEN [Concomitant]
  2. CYMBALTA [Suspect]
     Indication: DEPRESSION
     Dosage: 120 MG, QD
     Route: 048
  3. MORPHINE [Concomitant]
  4. DIAZEPAM [Concomitant]
  5. CYMBALTA [Suspect]
     Dosage: 120 MG, QD
     Route: 050
     Dates: start: 20111003
  6. MIRTAZAPINE [Concomitant]
  7. OMEPRAZOLE [Concomitant]
  8. AMITRIPTYLINE HCL [Concomitant]
  9. OXYCODONE HCL [Concomitant]

REACTIONS (3)
  - WRONG TECHNIQUE IN DRUG USAGE PROCESS [None]
  - NEOPLASM MALIGNANT [None]
  - DYSPHAGIA [None]
